FAERS Safety Report 7978910-8 (Version None)
Quarter: 2011Q4

REPORT INFORMATION
  Report Type: 
  Country: None (occurrence: None)
  Receive Date: 20111202
  Receipt Date: 20111118
  Transmission Date: 20120403
  Serious: Yes (Other)
  Sender: FDA-Public Use
  Company Number: US-1189121

PATIENT

DRUGS (6)
  1. NEVANAC [Suspect]
     Indication: CATARACT OPERATION
     Dosage: (OPHTHALMIC)
     Route: 047
  2. PREDNISOLONE ACETATE [Suspect]
     Indication: CATARACT OPERATION
     Dosage: (OPHTHALMIC)
     Route: 047
  3. BSS [Suspect]
     Indication: CATARACT OPERATION
     Dosage: (INTRAOCULAR), (INTRAOCULAR)
     Route: 031
     Dates: start: 20111103, end: 20111103
  4. BSS [Suspect]
     Indication: CATARACT OPERATION
     Dosage: (INTRAOCULAR), (INTRAOCULAR)
     Route: 031
     Dates: start: 20111103, end: 20111103
  5. VIGAMOX [Suspect]
     Indication: CATARACT OPERATION
     Dosage: (OPHTHALMIC)
     Route: 047
  6. BSS [Suspect]
     Indication: CATARACT OPERATION

REACTIONS (1)
  - TOXIC ANTERIOR SEGMENT SYNDROME [None]
